FAERS Safety Report 6923097-3 (Version None)
Quarter: 2010Q3

REPORT INFORMATION
  Report Type: 
  Country: None (occurrence: None)
  Receive Date: 20100811
  Receipt Date: 20100723
  Transmission Date: 20110219
  Serious: Yes (Other)
  Sender: FDA-Public Use
  Company Number: 2010AP001476

PATIENT
  Age: 9 Year
  Sex: Female

DRUGS (8)
  1. CYCLOSPORINE [Suspect]
     Indication: PROPHYLAXIS AGAINST GRAFT VERSUS HOST DISEASE
  2. PHENYTOIN [Concomitant]
     Indication: PROPHYLAXIS
  3. BUSULFAN [Concomitant]
  4. ANTITHYMOCYTE [Concomitant]
  5. IMMUNE GLOBULIN NOS [Concomitant]
  6. CYCLOPHOSPHAMIDE [Concomitant]
  7. PREDNISONE [Concomitant]
  8. MESNA [Concomitant]

REACTIONS (8)
  - ACUTE GRAFT VERSUS HOST DISEASE IN LIVER [None]
  - CHRONIC GRAFT VERSUS HOST DISEASE [None]
  - CYTOMEGALOVIRUS VIRAEMIA [None]
  - DRUG TOXICITY [None]
  - LEUKOENCEPHALOPATHY [None]
  - PNEUMONIA PNEUMOCOCCAL [None]
  - SEPTIC SHOCK [None]
  - STAPHYLOCOCCAL INFECTION [None]
